FAERS Safety Report 6123125-1 (Version None)
Quarter: 2009Q1

REPORT INFORMATION
  Report Type: 
  Country: None (occurrence: None)
  Receive Date: 20090318
  Receipt Date: 20090316
  Transmission Date: 20090719
  Serious: Yes (Life-Threatening)
  Sender: FDA-Public Use
  Company Number: JP-EISAI MEDICAL RESEARCH-E2020-02638-SPO-JP

PATIENT
  Sex: Male
  Weight: 52 kg

DRUGS (11)
  1. ARICEPT [Suspect]
     Indication: DEMENTIA ALZHEIMER'S TYPE
     Route: 048
     Dates: end: 20080414
  2. MUCOSTA [Concomitant]
     Route: 048
  3. ALLEGRA [Concomitant]
     Route: 048
     Dates: end: 20080414
  4. NEUQUINON [Concomitant]
     Route: 048
  5. FRANDOL-S [Concomitant]
  6. CALTAN [Concomitant]
     Route: 048
  7. TAKEPRON [Concomitant]
  8. ASPIRIN [Concomitant]
     Route: 048
  9. WARFARIN SODIUM [Concomitant]
     Route: 048
  10. MOBIC [Concomitant]
     Route: 048
  11. FERROMIA [Concomitant]
     Route: 048

REACTIONS (1)
  - TORSADE DE POINTES [None]
